FAERS Safety Report 4686821-9 (Version None)
Quarter: 2005Q2

REPORT INFORMATION
  Report Type: 
  Country: None (occurrence: None)
  Receive Date: 20050609
  Receipt Date: 20050530
  Transmission Date: 20051028
  Serious: Yes (Hospitalization)
  Sender: FDA-Public Use
  Company Number: FR-ABBOTT-05P-056-0302089-00

PATIENT
  Age: 5 Year
  Sex: Female

DRUGS (3)
  1. DEPAKENE [Suspect]
     Indication: GRAND MAL CONVULSION
     Route: 048
     Dates: start: 20050315, end: 20050412
  2. DEPAKENE [Suspect]
     Dates: end: 20050215
  3. CARBAMAZEPINE [Concomitant]
     Indication: DRUG USE FOR UNKNOWN INDICATION
     Route: 048
     Dates: start: 20050215, end: 20050315

REACTIONS (13)
  - APLASIA PURE RED CELL [None]
  - CEREBELLAR SYNDROME [None]
  - DRUG INTOLERANCE [None]
  - GANGLION [None]
  - GENERAL PHYSICAL CONDITION ABNORMAL [None]
  - LYMPHOPENIA [None]
  - MOTOR DYSFUNCTION [None]
  - MYOCLONUS [None]
  - NORMOCHROMIC NORMOCYTIC ANAEMIA [None]
  - OTITIS MEDIA [None]
  - PYREXIA [None]
  - THROMBOCYTOPENIA [None]
  - WHITE BLOOD CELL COUNT DECREASED [None]
